FAERS Safety Report 24638105 (Version 2)
Quarter: 2024Q4

REPORT INFORMATION
  Report Type: Spontaneous
  Country: DK (occurrence: DK)
  Receive Date: 20241119
  Receipt Date: 20241223
  Transmission Date: 20250115
  Serious: No
  Sender: ALEXION PHARMACEUTICALS
  Company Number: DK-ASTRAZENECA-202411GLO014146DK

PATIENT
  Age: 33 Year

DRUGS (6)
  1. QUETIAPINE FUMARATE [Suspect]
     Active Substance: QUETIAPINE FUMARATE
  2. QUETIAPINE FUMARATE [Suspect]
     Active Substance: QUETIAPINE FUMARATE
     Route: 048
  3. QUETIAPINE FUMARATE [Suspect]
     Active Substance: QUETIAPINE FUMARATE
  4. QUETIAPINE FUMARATE [Suspect]
     Active Substance: QUETIAPINE FUMARATE
     Route: 048
  5. TETRABENAZINE [Suspect]
     Active Substance: TETRABENAZINE
     Route: 065
  6. TETRABENAZINE [Suspect]
     Active Substance: TETRABENAZINE
     Route: 065

REACTIONS (2)
  - Exposure during pregnancy [Unknown]
  - Treatment noncompliance [Unknown]
